FAERS Safety Report 20512177 (Version 1)
Quarter: 2022Q1

REPORT INFORMATION
  Report Type: Spontaneous
  Country: US (occurrence: US)
  Receive Date: 20220224
  Receipt Date: 20220224
  Transmission Date: 20220424
  Serious: No
  Sender: FDA-Public Use
  Company Number: US-PFIZER INC-202200150395

PATIENT
  Age: 78 Year
  Sex: Female

DRUGS (1)
  1. LATANOPROST [Suspect]
     Active Substance: LATANOPROST
     Dosage: 2.5 ML

REACTIONS (3)
  - Hypoacusis [Unknown]
  - Product packaging quantity issue [Unknown]
  - Poor quality product administered [Unknown]
